FAERS Safety Report 5515647-9 (Version None)
Quarter: 2007Q4

REPORT INFORMATION
  Report Type: 
  Country: None (occurrence: None)
  Receive Date: 20071113
  Receipt Date: 20070723
  Transmission Date: 20080405
  Serious: No
  Sender: FDA-Public Use
  Company Number: A0665815A

PATIENT
  Age: 39 Year
  Sex: Male

DRUGS (13)
  1. COREG [Suspect]
     Dosage: 25MGK TWICE PER DAY
     Route: 048
     Dates: start: 20060601, end: 20070524
  2. LASIX [Suspect]
     Indication: DRUG USE FOR UNKNOWN INDICATION
     Route: 065
  3. VASOTEC [Concomitant]
  4. CLONIDINE [Concomitant]
  5. COUMADIN [Concomitant]
  6. ASPIRIN [Concomitant]
  7. METOLAZONE [Concomitant]
  8. GLIPIZIDE [Concomitant]
  9. SPIRONOLACTONE [Concomitant]
  10. VICODIN [Concomitant]
  11. METFORMIN HCL [Concomitant]
  12. POTASSIUM CHLORIDE [Concomitant]
  13. VITAMINS [Concomitant]

REACTIONS (6)
  - BLOOD GLUCOSE INCREASED [None]
  - FATIGUE [None]
  - OEDEMA PERIPHERAL [None]
  - PAIN IN EXTREMITY [None]
  - RASH [None]
  - WEIGHT INCREASED [None]
